FAERS Safety Report 5156308-8 (Version None)
Quarter: 2006Q4

REPORT INFORMATION
  Report Type: 
  Country: None (occurrence: None)
  Receive Date: 20061122
  Receipt Date: 20041203
  Transmission Date: 20070319
  Serious: Yes (Other)
  Sender: FDA-Public Use
  Company Number: GB-GLAXOSMITHKLINE-B0359759A

PATIENT
  Sex: Female

DRUGS (1)
  1. SEROXAT [Suspect]
     Indication: DEPRESSION
     Route: 065
     Dates: start: 19980227, end: 19980610

REACTIONS (4)
  - COMPLETED SUICIDE [None]
  - DIZZINESS [None]
  - DRUG WITHDRAWAL SYNDROME [None]
  - LETHARGY [None]
